FAERS Safety Report 12778503 (Version 2)
Quarter: 2016Q4

REPORT INFORMATION
  Report Type: Report from Study
  Country: US (occurrence: US)
  Receive Date: 20160926
  Receipt Date: 20161003
  Transmission Date: 20170207
  Serious: Yes (Hospitalization)
  Sender: FDA-Public Use
  Company Number: US-ACTELION-A-NJ2016-142572

PATIENT
  Age: 13 Month
  Sex: Male

DRUGS (19)
  1. HYDROCHLOROTHIAZIDE. [Concomitant]
     Active Substance: HYDROCHLOROTHIAZIDE
     Dosage: UNK, QD
  2. SODIUM CHLORIDE. [Concomitant]
     Active Substance: SODIUM CHLORIDE
     Dosage: 8 MG, UNK
  3. CAPTOPRIL. [Concomitant]
     Active Substance: CAPTOPRIL
     Dosage: 2 MG, UNK
  4. TRACLEER [Suspect]
     Active Substance: BOSENTAN
     Indication: PULMONARY HYPERTENSION
     Dosage: 15.625 MG, BID
     Route: 049
     Dates: start: 20160301
  5. RANITIDINE. [Concomitant]
     Active Substance: RANITIDINE
     Dosage: 30 MG, BID
  6. SILDENAFIL. [Concomitant]
     Active Substance: SILDENAFIL
  7. ACETAMINOPHEN. [Concomitant]
     Active Substance: ACETAMINOPHEN
     Dosage: 80 MG, Q6HRS
     Route: 048
  8. CHOLECALCIFEROL [Concomitant]
     Active Substance: CHOLECALCIFEROL
     Dosage: 5000 IU/ML, QD
  9. ENOXAPARIN [Concomitant]
     Active Substance: ENOXAPARIN
     Dosage: 11 MG, Q12HRS
     Route: 058
  10. SPIRONOLACTONE. [Concomitant]
     Active Substance: SPIRONOLACTONE
     Dosage: 12 MG, Q12HRS
  11. HYDROCORTISONE. [Concomitant]
     Active Substance: HYDROCORTISONE
     Dosage: UNK, QD
     Route: 061
  12. SIROLIMUS. [Concomitant]
     Active Substance: SIROLIMUS
  13. DIGOXIN. [Concomitant]
     Active Substance: DIGOXIN
     Dosage: 15 MCG, BID
  14. FERROUS SULFATE. [Concomitant]
     Active Substance: FERROUS SULFATE
     Dosage: 22 MG, BID
  15. HYDROCHLOROTHIAZIDE. [Concomitant]
     Active Substance: HYDROCHLOROTHIAZIDE
     Dosage: UNK, BID
  16. SODIUM CHLORIDE. [Concomitant]
     Active Substance: SODIUM CHLORIDE
     Dosage: 12 MG, TID
  17. ASPIRIN. [Concomitant]
     Active Substance: ASPIRIN
  18. OMEPRAZOLE. [Concomitant]
     Active Substance: OMEPRAZOLE
     Dosage: 5 MG, QD
  19. BACTRIM [Concomitant]
     Active Substance: SULFAMETHOXAZOLE\TRIMETHOPRIM
     Dosage: 40 MG, MWF

REACTIONS (11)
  - Pyrexia [Recovering/Resolving]
  - Hypovolaemia [Recovering/Resolving]
  - Tachypnoea [Recovering/Resolving]
  - Enterovirus infection [Recovering/Resolving]
  - Right ventricular failure [Recovering/Resolving]
  - Fontanelle depressed [Not Recovered/Not Resolved]
  - Rhinovirus infection [Recovering/Resolving]
  - Vomiting [Recovering/Resolving]
  - Polymerase chain reaction positive [Recovering/Resolving]
  - Pulmonary oedema [Recovering/Resolving]
  - Tachycardia [Not Recovered/Not Resolved]
